FAERS Safety Report 7404923-0 (Version None)
Quarter: 2011Q2

REPORT INFORMATION
  Report Type: 
  Country: None (occurrence: None)
  Receive Date: 20110411
  Receipt Date: 20110314
  Transmission Date: 20111010
  Serious: Yes (Hospitalization, Other)
  Sender: FDA-Public Use
  Company Number: US-BAYER-201040811NA

PATIENT
  Age: 37 Year
  Sex: Female
  Weight: 111 kg

DRUGS (6)
  1. CETIRIZINE HYDROCHLORIDE [Concomitant]
     Indication: MULTIPLE ALLERGIES
     Dosage: 10 MG, QD
     Dates: start: 20000101
  2. HYDROCODONE BITARTRATE [Concomitant]
     Dosage: 5MG/500MG
     Dates: start: 20071001
  3. PRILOSEC [Concomitant]
     Dosage: 20 MG, QD
     Route: 048
  4. YAZ [Suspect]
     Indication: CONTRACEPTION
     Dosage: UNK
     Route: 048
     Dates: start: 20081219, end: 20090204
  5. OXYCODONE [Concomitant]
     Dosage: 5MG/325MG
     Dates: start: 20080901
  6. NASONEX [Concomitant]
     Dosage: 50 MCG/24HR, QD
     Route: 045

REACTIONS (6)
  - FLUID RETENTION [None]
  - PAIN IN EXTREMITY [None]
  - DYSSTASIA [None]
  - DEEP VEIN THROMBOSIS [None]
  - OEDEMA PERIPHERAL [None]
  - VENOUS INJURY [None]
